FAERS Safety Report 9407514 (Version 1)
Quarter: 2013Q3

REPORT INFORMATION
  Report Type: Spontaneous
  Country: DE (occurrence: DE)
  Receive Date: 20130718
  Receipt Date: 20130718
  Transmission Date: 20140515
  Serious: Yes (Hospitalization)
  Sender: FDA-Public Use
  Company Number: DE-JNJFOC-20130707149

PATIENT
  Sex: Female

DRUGS (3)
  1. XARELTO [Suspect]
     Indication: CEREBROVASCULAR ACCIDENT PROPHYLAXIS
     Route: 048
  2. XARELTO [Suspect]
     Indication: ATRIAL THROMBOSIS
     Route: 048
  3. ASS [Suspect]
     Indication: ATRIAL THROMBOSIS
     Route: 065

REACTIONS (2)
  - Pericardial effusion [Unknown]
  - Haemothorax [Unknown]
